FAERS Safety Report 5405575-1 (Version None)
Quarter: 2007Q3

REPORT INFORMATION
  Report Type: 
  Country: None (occurrence: None)
  Receive Date: 20070803
  Receipt Date: 20070625
  Transmission Date: 20080115
  Serious: Yes (Hospitalization)
  Sender: FDA-Public Use
  Company Number: EC-AMGEN-US237196

PATIENT
  Sex: Female

DRUGS (1)
  1. ENBREL [Suspect]
     Indication: JUVENILE ARTHRITIS
     Route: 064
     Dates: start: 20070614

REACTIONS (2)
  - BLOOD BILIRUBIN INCREASED [None]
  - PREMATURE BABY [None]
